FAERS Safety Report 8113473-8 (Version None)
Quarter: 2012Q1

REPORT INFORMATION
  Report Type: 
  Country: None (occurrence: None)
  Receive Date: 20120203
  Receipt Date: 20120201
  Transmission Date: 20120608
  Serious: Yes (Hospitalization)
  Sender: FDA-Public Use
  Company Number: JP-EISAI INC-E2020-06853-SPO-JP

PATIENT
  Sex: Male

DRUGS (9)
  1. TENORMIN [Concomitant]
     Indication: ATRIAL FIBRILLATION
     Route: 048
     Dates: end: 20100609
  2. DIGITALIS TAB [Concomitant]
     Indication: ATRIAL FIBRILLATION
     Dates: end: 20100609
  3. SYMMETREL [Concomitant]
     Indication: PARKINSON'S DISEASE
     Route: 048
     Dates: end: 20100609
  4. ASPIRIN [Concomitant]
     Route: 048
     Dates: end: 20100609
  5. FAMOTIDINE [Concomitant]
     Route: 048
     Dates: end: 20100609
  6. TORSEMIDE [Concomitant]
     Route: 048
     Dates: end: 20100609
  7. ARICEPT [Suspect]
     Indication: DEMENTIA ALZHEIMER'S TYPE
     Route: 048
     Dates: start: 20090811, end: 20100608
  8. ARICEPT [Suspect]
     Route: 048
     Dates: start: 20100620
  9. EC-DOPARL [Concomitant]
     Indication: PARKINSON'S DISEASE
     Route: 048
     Dates: end: 20100609

REACTIONS (4)
  - SYNCOPE [None]
  - VENTRICULAR TACHYCARDIA [None]
  - ATRIAL FIBRILLATION [None]
  - ELECTROCARDIOGRAM QT PROLONGED [None]
